FAERS Safety Report 6327558-X (Version None)
Quarter: 2009Q3

REPORT INFORMATION
  Report Type: 
  Country: None (occurrence: None)
  Receive Date: 20090825
  Receipt Date: 20090812
  Transmission Date: 20100115
  Serious: Yes (Other)
  Sender: FDA-Public Use
  Company Number: AU-ELI_LILLY_AND_COMPANY-AU200908002388

PATIENT
  Age: 8 Year
  Sex: Male

DRUGS (1)
  1. STRATTERA [Suspect]
     Dosage: 40 MG, DAILY (1/D)
     Route: 048
     Dates: start: 20090618

REACTIONS (5)
  - ANGER [None]
  - CONTUSION [None]
  - DECREASED APPETITE [None]
  - HOMICIDAL IDEATION [None]
  - WEIGHT DECREASED [None]
